FAERS Safety Report 5511843-5 (Version None)
Quarter: 2007Q4

REPORT INFORMATION
  Report Type: 
  Country: None (occurrence: None)
  Receive Date: 20071109
  Receipt Date: 20071017
  Transmission Date: 20080405
  Serious: No
  Sender: FDA-Public Use
  Company Number: US-BOEHRINGER INGELHEIM PHARMACEUTICALS, INC.-2007-BP-21961BP

PATIENT
  Sex: Female

DRUGS (18)
  1. MIRAPEX [Suspect]
     Indication: RESTLESS LEGS SYNDROME
     Route: 048
     Dates: start: 20070720, end: 20070801
  2. CLONAZEPAM [Concomitant]
  3. GEMFIBROZIL [Concomitant]
  4. IPRATROPIUM BROMIDE NASAL [Concomitant]
  5. QVAR 40 [Concomitant]
     Indication: ASTHMA
  6. PROVENTIL-HFA [Concomitant]
     Indication: ASTHMA
  7. ASPIRIN [Concomitant]
  8. VIT B COMPLEX [Concomitant]
     Route: 048
  9. BIOTIN [Concomitant]
  10. CAL-MAG-CITRATE PLUS D [Concomitant]
  11. CITRUCEL [Concomitant]
  12. CHROMIUM PICOLINATE [Concomitant]
  13. COENZYME Q10 [Concomitant]
  14. VITAMIN E [Concomitant]
  15. EYE GUARD PLUS [Concomitant]
  16. GINKO BILOBA [Concomitant]
  17. GLUCOSAMINE CHONDROITIN [Concomitant]
  18. OMEGA 3 [Concomitant]

REACTIONS (1)
  - INSOMNIA [None]
